FAERS Safety Report 8381799-9 (Version None)
Quarter: 2012Q2

REPORT INFORMATION
  Report Type: 
  Country: None (occurrence: None)
  Receive Date: 20120522
  Receipt Date: 20120522
  Transmission Date: 20120825
  Serious: Yes (Disabling)
  Sender: FDA-Public Use
  Company Number: None

PATIENT
  Age: 13 Year
  Sex: Female
  Weight: 43.0917 kg

DRUGS (1)
  1. ULTRA HEALING CUREL [Suspect]
     Indication: DRY SKIN
     Dates: start: 20120520, end: 20120520

REACTIONS (1)
  - APPLICATION SITE HYPERSENSITIVITY [None]
